FAERS Safety Report 9462908 (Version 1)
Quarter: 2013Q3

REPORT INFORMATION
  Report Type: Spontaneous
  Country: FR (occurrence: None)
  Receive Date: 20130814
  Receipt Date: 20130814
  Transmission Date: 20140515
  Serious: Yes (Other)
  Sender: FDA-Public Use
  Company Number: FK201303266

PATIENT
  Age: 77 Year
  Sex: Male

DRUGS (1)
  1. IRINOTECAN [Suspect]
     Indication: RECTAL ADENOCARCINOMA
     Dosage: 340 MG, INTRAVENOUS  (NOT OTHERWISE SPECIFIED)
     Route: 042
     Dates: start: 20130604, end: 20130604

REACTIONS (2)
  - Syncope [None]
  - Pulmonary oedema [None]
